FAERS Safety Report 9674769 (Version 1)
Quarter: 2013Q4

REPORT INFORMATION
  Report Type: Spontaneous
  Country: None (occurrence: None)
  Receive Date: 20131106
  Receipt Date: 20131106
  Transmission Date: 20140711
  Serious: No
  Sender: FDA-Public Use
  Company Number: None

PATIENT
  Sex: 0

DRUGS (1)
  1. VALPROIC ACID [Suspect]
     Indication: HEPATITIS C
     Route: 048

REACTIONS (4)
  - Circumstance or information capable of leading to medication error [None]
  - Drug dispensing error [None]
  - Wrong drug administered [None]
  - Confusional state [None]
